FAERS Safety Report 7349533-9 (Version None)
Quarter: 2011Q1

REPORT INFORMATION
  Report Type: 
  Country: None (occurrence: None)
  Receive Date: 20110314
  Receipt Date: 20110303
  Transmission Date: 20110831
  Serious: No
  Sender: FDA-Public Use
  Company Number: AU-SANOFI-AVENTIS-2011SA013745

PATIENT
  Sex: Female

DRUGS (2)
  1. ARAVA [Suspect]
     Route: 065
     Dates: end: 20101101
  2. ARAVA [Suspect]
     Indication: DRUG EXPOSURE BEFORE PREGNANCY
     Route: 065
     Dates: end: 20101101

REACTIONS (1)
  - DRUG EXPOSURE BEFORE PREGNANCY [None]
